FAERS Safety Report 12426460 (Version 2)
Quarter: 2016Q2

REPORT INFORMATION
  Report Type: Spontaneous
  Country: US (occurrence: US)
  Receive Date: 20160601
  Receipt Date: 20160607
  Transmission Date: 20160815
  Serious: No
  Sender: FDA-Public Use
  Company Number: US-BAYER-2016-099532

PATIENT
  Age: 83 Year
  Sex: Male
  Weight: 74.83 kg

DRUGS (1)
  1. MIRALAX [Suspect]
     Active Substance: POLYETHYLENE GLYCOL 3350
     Indication: CONSTIPATION
     Dosage: 1 DF, QD
     Route: 048
     Dates: start: 2015

REACTIONS (5)
  - Rash [Not Recovered/Not Resolved]
  - Rash pruritic [Not Recovered/Not Resolved]
  - Product use issue [None]
  - Drug prescribing error [None]
  - Insomnia [Not Recovered/Not Resolved]

NARRATIVE: CASE EVENT DATE: 2015
